FAERS Safety Report 14481253 (Version 1)
Quarter: 2018Q1

REPORT INFORMATION
  Report Type: Spontaneous
  Country: MT (occurrence: MT)
  Receive Date: 20180202
  Receipt Date: 20180202
  Transmission Date: 20180509
  Serious: Yes (Other)
  Sender: FDA-Public Use
  Company Number: PHHY2017MT176431

PATIENT
  Age: 59 Year
  Sex: Female

DRUGS (1)
  1. GILENYA [Suspect]
     Active Substance: FINGOLIMOD HYDROCHLORIDE
     Indication: RELAPSING-REMITTING MULTIPLE SCLEROSIS
     Dosage: 0.5 MG, QD
     Route: 048
     Dates: start: 20140508, end: 20171103

REACTIONS (5)
  - Tumefactive multiple sclerosis [Recovered/Resolved]
  - Dysarthria [Unknown]
  - Coordination abnormal [Unknown]
  - Ataxia [Unknown]
  - Multiple sclerosis relapse [Not Recovered/Not Resolved]
